FAERS Safety Report 10618133 (Version 1)
Quarter: 2014Q4

REPORT INFORMATION
  Report Type: Spontaneous
  Country: FR (occurrence: FR)
  Receive Date: 20141202
  Receipt Date: 20141202
  Transmission Date: 20150529
  Serious: Yes (Hospitalization)
  Sender: FDA-Public Use
  Company Number: FR-ACCORD-027368

PATIENT
  Age: 58 Year
  Sex: Male
  Weight: 69.5 kg

DRUGS (4)
  1. CISPLATINE ACCORD [Suspect]
     Active Substance: CISPLATIN
     Indication: OROPHARYNGEAL SQUAMOUS CELL CARCINOMA
     Route: 042
     Dates: start: 20141103, end: 20141106
  2. DOCETAXEL KABI [Suspect]
     Active Substance: DOCETAXEL
     Indication: OROPHARYNGEAL SQUAMOUS CELL CARCINOMA
     Dosage: STRENGTH: 160 MG/8ML
     Route: 042
     Dates: start: 20141105
  3. FLUOROURACILE ACCORD [Suspect]
     Active Substance: FLUOROURACIL
     Indication: OROPHARYNGEAL SQUAMOUS CELL CARCINOMA
     Route: 042
     Dates: start: 20141103, end: 20141105
  4. NEULASTA [Concomitant]
     Active Substance: PEGFILGRASTIM
     Indication: OROPHARYNGEAL SQUAMOUS CELL CARCINOMA

REACTIONS (5)
  - Chills [Unknown]
  - Bone marrow failure [Recovered/Resolved]
  - Acute kidney injury [Recovering/Resolving]
  - Off label use [Unknown]
  - Pyrexia [Unknown]

NARRATIVE: CASE EVENT DATE: 20141110
